FAERS Safety Report 24379132 (Version 1)
Quarter: 2024Q3

REPORT INFORMATION
  Report Type: Report from Study
  Country: JP (occurrence: JP)
  Receive Date: 20240930
  Receipt Date: 20240930
  Transmission Date: 20241017
  Serious: Yes (Hospitalization, Other)
  Sender: ROCHE
  Company Number: JP-CHUGAI-2024032726

PATIENT
  Age: 6 Decade

DRUGS (1)
  1. HERCEPTIN [Suspect]
     Active Substance: TRASTUZUMAB
     Indication: Breast cancer
     Route: 042

REACTIONS (3)
  - Aortic aneurysm [Unknown]
  - Cardiac failure [Unknown]
  - Cardiac dysfunction [Unknown]
